FAERS Safety Report 5188357-8 (Version None)
Quarter: 2006Q4

REPORT INFORMATION
  Report Type: 
  Country: None (occurrence: None)
  Receive Date: 20061221
  Receipt Date: 20061208
  Transmission Date: 20070319
  Serious: Yes (Life-Threatening, Hospitalization)
  Sender: FDA-Public Use
  Company Number: NO-BRISTOL-MYERS SQUIBB COMPANY-13613799

PATIENT
  Age: 69 Year
  Sex: Male

DRUGS (3)
  1. METFORMIN HCL [Suspect]
     Indication: DIABETES MELLITUS NON-INSULIN-DEPENDENT
  2. LOSARTAN POTASSIUM [Suspect]
     Indication: HYPERTENSION
  3. HYDROCHLOROTHIAZIDE [Suspect]
     Indication: HYPERTENSION

REACTIONS (10)
  - ABDOMINAL PAIN [None]
  - CARDIAC ARREST [None]
  - DIALYSIS [None]
  - HYPERVENTILATION [None]
  - LACTIC ACIDOSIS [None]
  - NEPHROLITHIASIS [None]
  - RENAL FAILURE [None]
  - RENAL FAILURE ACUTE [None]
  - RESPIRATORY ARREST [None]
  - VISUAL DISTURBANCE [None]
